FAERS Safety Report 12993612 (Version 1)
Quarter: 2016Q4

REPORT INFORMATION
  Report Type: Spontaneous
  Country: US (occurrence: US)
  Receive Date: 20161201
  Receipt Date: 20161201
  Transmission Date: 20170207
  Serious: Yes (Hospitalization)
  Sender: FDA-Public Use
  Company Number: None

PATIENT
  Sex: Male

DRUGS (14)
  1. LOSARTAN. [Concomitant]
     Active Substance: LOSARTAN
  2. PREDNISONE. [Concomitant]
     Active Substance: PREDNISONE
  3. AMOX/K CLAV [Concomitant]
     Active Substance: AMOXICILLIN\CLAVULANATE POTASSIUM
  4. METOPROLOL. [Concomitant]
     Active Substance: METOPROLOL
  5. AMLODIPINE [Concomitant]
     Active Substance: AMLODIPINE BESYLATE
  6. FLUTICASONE [Concomitant]
     Active Substance: FLUTICASONE\FLUTICASONE PROPIONATE
  7. VITAMIN D3 [Concomitant]
     Active Substance: CHOLECALCIFEROL
  8. KCL [Concomitant]
     Active Substance: POTASSIUM CHLORIDE
  9. ZYTIGA [Suspect]
     Active Substance: ABIRATERONE ACETATE
     Indication: PROSTATE CANCER
     Route: 048
     Dates: start: 20150603
  10. CLOPIDOGREL [Concomitant]
     Active Substance: CLOPIDOGREL BISULFATE
  11. METAMUCIL [Concomitant]
     Active Substance: PLANTAGO SEED
  12. RAPAFLO [Concomitant]
     Active Substance: SILODOSIN
  13. ZETIA [Concomitant]
     Active Substance: EZETIMIBE
  14. DULOXETINE. [Concomitant]
     Active Substance: DULOXETINE

REACTIONS (2)
  - Urinary tract infection [None]
  - Fatigue [None]

NARRATIVE: CASE EVENT DATE: 2016
